FAERS Safety Report 15320108 (Version 1)
Quarter: 2018Q3

REPORT INFORMATION
  Report Type: Spontaneous
  Country: US (occurrence: US)
  Receive Date: 20180827
  Receipt Date: 20180827
  Transmission Date: 20181010
  Serious: No
  Sender: FDA-Public Use
  Company Number: US-PFIZER INC-2018341106

PATIENT
  Age: 3 Year
  Sex: Female

DRUGS (1)
  1. GENOTROPIN [Suspect]
     Active Substance: SOMATROPIN
     Dosage: 0.3 MG, DAILY
     Dates: start: 20171007

REACTIONS (5)
  - Blood urea nitrogen/creatinine ratio increased [Unknown]
  - Albumin globulin ratio increased [Unknown]
  - Blood albumin increased [Unknown]
  - Blood glucose increased [Unknown]
  - Blood calcium decreased [Unknown]
